FAERS Safety Report 21697678 (Version 1)
Quarter: 2022Q4

REPORT INFORMATION
  Report Type: Spontaneous
  Country: US (occurrence: US)
  Receive Date: 20221208
  Receipt Date: 20221208
  Transmission Date: 20230113
  Serious: Yes (Hospitalization)
  Sender: FDA-Public Use
  Company Number: US-SUN PHARMACEUTICAL INDUSTRIES LTD-2022R1-367100

PATIENT
  Age: 40 Year
  Sex: Male

DRUGS (3)
  1. PREDNISONE [Suspect]
     Active Substance: PREDNISONE
     Indication: COVID-19 pneumonia
     Dosage: 0.5 MICROGRAM/KILOGRAM
     Route: 065
  2. REMDESIVIR [Suspect]
     Active Substance: REMDESIVIR
     Indication: COVID-19 pneumonia
     Dosage: UNK
     Route: 042
  3. AMBISOME [Suspect]
     Active Substance: AMPHOTERICIN B
     Indication: COVID-19 pneumonia
     Dosage: 5 MILLIGRAM/KILOGRAM
     Route: 065

REACTIONS (1)
  - Therapy non-responder [Unknown]
